FAERS Safety Report 17483571 (Version 1)
Quarter: 2020Q1

REPORT INFORMATION
  Report Type: Spontaneous
  Country: US (occurrence: US)
  Receive Date: 20200301
  Receipt Date: 20200301
  Transmission Date: 20200409
  Serious: Yes (Other)
  Sender: FDA-Public Use
  Company Number: None

PATIENT
  Age: 37 Year
  Sex: Male

DRUGS (3)
  1. CLOZAPINE. [Suspect]
     Active Substance: CLOZAPINE
     Indication: SCHIZOAFFECTIVE DISORDER
     Dates: start: 20200215, end: 20200301
  2. DEPAKOTE [Suspect]
     Active Substance: DIVALPROEX SODIUM
  3. PALIPERIDONE. [Suspect]
     Active Substance: PALIPERIDONE
     Dates: start: 20200215, end: 20200301

REACTIONS (1)
  - Fall [None]

NARRATIVE: CASE EVENT DATE: 20200301
